FAERS Safety Report 14327208 (Version 1)
Quarter: 2017Q4

REPORT INFORMATION
  Report Type: Spontaneous
  Country: IT (occurrence: IT)
  Receive Date: 20171227
  Receipt Date: 20171227
  Transmission Date: 20180321
  Serious: Yes (Other)
  Sender: FDA-Public Use
  Company Number: IT-009507513-1712ITA012977

PATIENT

DRUGS (2)
  1. VINCRISTINE [Interacting]
     Active Substance: VINCRISTINE
  2. POSACONAZOLE [Suspect]
     Active Substance: POSACONAZOLE
     Route: 048

REACTIONS (2)
  - Ileus [Recovered/Resolved]
  - Drug interaction [Recovered/Resolved]
